FAERS Safety Report 23526483 (Version 1)
Quarter: 2024Q1

REPORT INFORMATION
  Report Type: Report from Study
  Country: US (occurrence: US)
  Receive Date: 20240215
  Receipt Date: 20240215
  Transmission Date: 20240410
  Serious: Yes (Other)
  Sender: FDA-Public Use
  Company Number: US-BAUSCH-BL-2024-002240

PATIENT
  Age: 62 Year
  Sex: Male

DRUGS (1)
  1. SILIQ [Suspect]
     Active Substance: BRODALUMAB
     Indication: Psoriasis
     Dosage: INJECT 210 MG SUBCUTANEOUSLY AT WEEKS 0, 1 AND 2 AS DIRECTED
     Route: 058
     Dates: start: 202309, end: 2024

REACTIONS (2)
  - Surgery [Unknown]
  - Product use issue [Unknown]

NARRATIVE: CASE EVENT DATE: 20240101
